FAERS Safety Report 23543721 (Version 1)
Quarter: 2024Q1

REPORT INFORMATION
  Report Type: Spontaneous
  Country: US (occurrence: None)
  Receive Date: 20240216
  Receipt Date: 20240216
  Transmission Date: 20240410
  Serious: Yes (Other)
  Sender: FDA-Public Use
  Company Number: None

PATIENT
  Age: 82 Year
  Sex: Female
  Weight: 67.5 kg

DRUGS (11)
  1. ENTRESTO [Suspect]
     Active Substance: SACUBITRIL\VALSARTAN
     Indication: Cardiac failure
     Dosage: OTHER QUANTITY : 60 TABLET(S);?FREQUENCY : DAILY;?
     Route: 048
     Dates: start: 20231107, end: 20240214
  2. DEVICE [Concomitant]
     Active Substance: DEVICE
  3. VENLAFAXINE [Concomitant]
     Active Substance: VENLAFAXINE HYDROCHLORIDE
  4. ZOLPIDEM [Concomitant]
     Active Substance: ZOLPIDEM TARTRATE
  5. METOPROLOL [Concomitant]
     Active Substance: METOPROLOL
  6. ROSUVASTATIN [Concomitant]
     Active Substance: ROSUVASTATIN
  7. SPIRONOLACTONE [Concomitant]
     Active Substance: SPIRONOLACTONE
  8. VITAMIN D3 [Concomitant]
     Active Substance: CHOLECALCIFEROL
  9. OMEGA 3 [Concomitant]
     Active Substance: CAPSAICIN
  10. VITAMIN B12 [Concomitant]
     Active Substance: CYANOCOBALAMIN
  11. VITAMINS [Concomitant]
     Active Substance: VITAMINS

REACTIONS (2)
  - Drug ineffective [None]
  - Alcohol use [None]

NARRATIVE: CASE EVENT DATE: 20240110
